FAERS Safety Report 9861764 (Version 1)
Quarter: 2014Q1

REPORT INFORMATION
  Report Type: Spontaneous
  Country: NL (occurrence: NL)
  Receive Date: 20140203
  Receipt Date: 20140203
  Transmission Date: 20141002
  Serious: Yes (Disabling, Other)
  Sender: FDA-Public Use
  Company Number: NL-ACCORD-021552

PATIENT
  Sex: Female

DRUGS (2)
  1. QUETIAPINE [Suspect]
     Indication: PRODUCT USED FOR UNKNOWN INDICATION
     Dosage: ACCORD^S QUETIAPINE?THERAPY START SINCE SUMMER OF 2013.?EXP. DATE: 08-2015
     Dates: start: 2013
  2. FOLIC ACID [Concomitant]

REACTIONS (8)
  - Abortion spontaneous [Unknown]
  - Abdominal discomfort [Unknown]
  - Dyspepsia [Unknown]
  - Pain in extremity [Unknown]
  - Muscle spasms [Unknown]
  - Exposure during pregnancy [Unknown]
  - Tremor [Unknown]
  - Vomiting [Unknown]
